FAERS Safety Report 21451130 (Version 2)
Quarter: 2022Q4

REPORT INFORMATION
  Report Type: Spontaneous
  Country: IT (occurrence: IT)
  Receive Date: 20221013
  Receipt Date: 20221229
  Transmission Date: 20230113
  Serious: Yes (Other)
  Sender: FDA-Public Use
  Company Number: None

PATIENT
  Age: 72 Year
  Sex: Female

DRUGS (2)
  1. ROSUVASTATIN CALCIUM [Suspect]
     Active Substance: ROSUVASTATIN CALCIUM
     Indication: Drug abuse
     Dosage: 140 MG (ASSUME 140 MG DI ROSUVASTATINA) (IL PAZIENTE ASSUME 14 COMPRESSE DI ROSUVASTATINA)
     Route: 048
     Dates: start: 20220831, end: 20220831
  2. TAPAZOLE [Suspect]
     Active Substance: METHIMAZOLE
     Indication: Drug abuse
     Dosage: 35MG (HAASSUNTO 7 COMPRESSE TAPAZOLE)
     Route: 048
     Dates: start: 20220401, end: 20220401

REACTIONS (2)
  - Drug abuse [Recovering/Resolving]
  - Vomiting [Recovering/Resolving]

NARRATIVE: CASE EVENT DATE: 20220831
